FAERS Safety Report 20134682 (Version 6)
Quarter: 2022Q2

REPORT INFORMATION
  Report Type: Report from Study
  Country: FR (occurrence: FR)
  Receive Date: 20211201
  Receipt Date: 20220421
  Transmission Date: 20220720
  Serious: Yes (Other)
  Sender: FDA-Public Use
  Company Number: FR-NOVARTISPH-NVSC2021FR265649

PATIENT
  Sex: Female
  Weight: 75 kg

DRUGS (2)
  1. TABRECTA [Suspect]
     Active Substance: CAPMATINIB
     Indication: Non-small cell lung cancer
     Dosage: 800 MG, QD
     Route: 048
     Dates: start: 20200914
  2. TABRECTA [Suspect]
     Active Substance: CAPMATINIB
     Dosage: 400 MG, QD
     Route: 048
     Dates: start: 20201223

REACTIONS (4)
  - Hepatic cytolysis [Recovered/Resolved]
  - Renal failure [Recovering/Resolving]
  - Creatinine renal clearance decreased [Unknown]
  - Oedema peripheral [Unknown]

NARRATIVE: CASE EVENT DATE: 20201120
